FAERS Safety Report 11825923 (Version 4)
Quarter: 2016Q1

REPORT INFORMATION
  Report Type: Report from Study
  Country: US (occurrence: US)
  Receive Date: 20151211
  Receipt Date: 20160122
  Transmission Date: 20160525
  Serious: Yes (Other)
  Sender: FDA-Public Use
  Company Number: US-BAYER-2015-468495

PATIENT
  Age: 75 Year
  Sex: Male

DRUGS (1)
  1. NEXAVAR [Suspect]
     Active Substance: SORAFENIB
     Indication: HEPATOCELLULAR CARCINOMA
     Dosage: 400 MG, BID
     Route: 048
     Dates: start: 20151014, end: 20160111

REACTIONS (10)
  - Fatigue [Not Recovered/Not Resolved]
  - Pruritus [Not Recovered/Not Resolved]
  - Fatigue [None]
  - Diarrhoea [None]
  - Chills [None]
  - Muscular weakness [None]
  - Burning sensation [None]
  - Gait disturbance [None]
  - Diarrhoea [Not Recovered/Not Resolved]
  - Decreased appetite [None]

NARRATIVE: CASE EVENT DATE: 201511
